FAERS Safety Report 24315724 (Version 1)
Quarter: 2024Q3

REPORT INFORMATION
  Report Type: Spontaneous
  Country: CA (occurrence: CA)
  Receive Date: 20240913
  Receipt Date: 20240913
  Transmission Date: 20241017
  Serious: Yes (Other)
  Sender: TEVA
  Company Number: CA-TEVA-VS-3240648

PATIENT

DRUGS (2)
  1. AMOXICILLIN [Suspect]
     Active Substance: AMOXICILLIN
     Indication: Antibiotic therapy
     Route: 065
  2. CEFPROZIL [Suspect]
     Active Substance: CEFPROZIL
     Indication: Antibiotic therapy
     Dosage: TARO-CEFPROZIL
     Route: 065

REACTIONS (4)
  - Drug hypersensitivity [Unknown]
  - Urticaria [Unknown]
  - Rash maculo-papular [Unknown]
  - Flushing [Unknown]
